FAERS Safety Report 11135581 (Version 1)
Quarter: 2015Q2

REPORT INFORMATION
  Report Type: Spontaneous
  Country: None (occurrence: None)
  Receive Date: 20150522
  Receipt Date: 20150522
  Transmission Date: 20150821
  Serious: Yes (Hospitalization, Other)
  Sender: FDA-Public Use
  Company Number: None

PATIENT
  Age: 25 Year
  Sex: Male
  Weight: 68.04 kg

DRUGS (2)
  1. EXJADE [Suspect]
     Active Substance: DEFERASIROX
     Indication: IRON OVERLOAD
     Dosage: 500 MG, TABS, QD, PO?
     Route: 048
     Dates: start: 20150305
  2. EXJADE [Suspect]
     Active Substance: DEFERASIROX
     Dosage: EXJADE 250MG, TAB QD, PO?
     Route: 048
     Dates: start: 20150521

REACTIONS (3)
  - Sickle cell anaemia with crisis [None]
  - Night sweats [None]
  - Headache [None]

NARRATIVE: CASE EVENT DATE: 20150505
